FAERS Safety Report 5733710-4 (Version None)
Quarter: 2008Q2

REPORT INFORMATION
  Report Type: 
  Country: None (occurrence: None)
  Receive Date: 20080509
  Receipt Date: 20080428
  Transmission Date: 20081010
  Serious: Yes (Hospitalization, Other)
  Sender: FDA-Public Use
  Company Number: US-PFIZER INC-2006075435

PATIENT
  Sex: Female
  Weight: 136 kg

DRUGS (1)
  1. BEXTRA [Suspect]
     Indication: ARTHRITIS

REACTIONS (9)
  - CORONARY ARTERY OCCLUSION [None]
  - DEVICE RELATED INFECTION [None]
  - DIABETES MELLITUS [None]
  - IMPAIRED HEALING [None]
  - MYOCARDIAL INFARCTION [None]
  - POST PROCEDURAL COMPLICATION [None]
  - THYROID DISORDER [None]
  - WOUND COMPLICATION [None]
  - WOUND SECRETION [None]
